FAERS Safety Report 5104598-X (Version None)
Quarter: 2006Q3

REPORT INFORMATION
  Report Type: 
  Country: None (occurrence: None)
  Receive Date: 20060914
  Receipt Date: 20060316
  Transmission Date: 20061208
  Serious: No
  Sender: FDA-Public Use
  Company Number: US-BRISTOL-MYERS SQUIBB COMPANY-13317797

PATIENT
  Sex: Female
  Weight: 63 kg

DRUGS (1)
  1. BUSPAR [Suspect]
     Route: 048
     Dates: start: 20050810, end: 20050909

REACTIONS (1)
  - DYSPEPSIA [None]
